FAERS Safety Report 19097585 (Version 1)
Quarter: 2021Q2

REPORT INFORMATION
  Report Type: Spontaneous
  Country: IT (occurrence: IT)
  Receive Date: 20210406
  Receipt Date: 20210406
  Transmission Date: 20210717
  Serious: Yes (Hospitalization)
  Sender: FDA-Public Use
  Company Number: IT-MYLANLABS-2021M1020587

PATIENT
  Age: 70 Year
  Sex: Female

DRUGS (5)
  1. FOLATE [Concomitant]
     Active Substance: FOLATE SODIUM
     Indication: PRODUCT USED FOR UNKNOWN INDICATION
     Dosage: UNK
     Route: 065
  2. TICLOPIDINE [Suspect]
     Active Substance: TICLOPIDINE
     Indication: ANTIPLATELET THERAPY
     Dosage: 250 MILLIGRAM, BID
     Route: 065
  3. ATORVASTATIN [Concomitant]
     Active Substance: ATORVASTATIN
     Indication: HYPERCHOLESTEROLAEMIA
     Dosage: 20 MILLIGRAM, QD
     Route: 065
  4. AMLODIPINE [Concomitant]
     Active Substance: AMLODIPINE BESYLATE
     Indication: HYPERTENSION
     Dosage: 5 MILLIGRAM, QD
     Route: 065
  5. COBALAMIN [Concomitant]
     Active Substance: COBALAMIN
     Indication: PRODUCT USED FOR UNKNOWN INDICATION
     Dosage: UNK
     Route: 065

REACTIONS (4)
  - Hepatotoxicity [Recovered/Resolved]
  - Agranulocytosis [Recovering/Resolving]
  - Hepatic steatosis [Unknown]
  - Blood disorder [Unknown]
